FAERS Safety Report 6424968-7 (Version None)
Quarter: 2009Q4

REPORT INFORMATION
  Report Type: 
  Country: None (occurrence: None)
  Receive Date: 20091103
  Receipt Date: 20091028
  Transmission Date: 20100525
  Serious: Yes (Hospitalization, Other)
  Sender: FDA-Public Use
  Company Number: US-ELI_LILLY_AND_COMPANY-US200910007229

PATIENT
  Sex: Female

DRUGS (25)
  1. HUMALOG MIX 75/25 [Suspect]
     Dosage: 35 U, EACH MORNING
  2. HUMALOG MIX 75/25 [Suspect]
     Dosage: 35 U, EACH EVENING
  3. HUMALOG MIX 75/25 [Suspect]
  4. HUMALOG MIX 75/25 [Suspect]
     Dosage: 35 U, EACH MORNING
  5. HUMALOG MIX 75/25 [Suspect]
     Dosage: 35 U, EACH EVENING
  6. HUMALOG MIX 75/25 [Suspect]
     Dosage: 35 U, EACH MORNING
  7. HUMALOG MIX 75/25 [Suspect]
     Dosage: 35 U, EACH EVENING
  8. HUMALOG [Suspect]
     Dosage: 10 U, AS NEEDED
  9. BYETTA [Concomitant]
     Dosage: 10 UG, EACH MORNING
  10. BYETTA [Concomitant]
     Dosage: 10 UG, EACH EVENING
  11. METFORMIN HCL [Concomitant]
     Dosage: 1000 MG, EACH MORNING
  12. METFORMIN HCL [Concomitant]
     Dosage: 1000 MG, EACH EVENING
  13. COUMADIN [Concomitant]
     Dosage: 5 MG, UNK
  14. ACTONEL [Concomitant]
     Indication: OSTEOPOROSIS
     Dosage: 35 MG, WEEKLY (1/W)
  15. SYNTHROID [Concomitant]
     Dosage: 100 UG, DAILY (1/D)
  16. XANAX [Concomitant]
     Dosage: 0.5 MG, UNK
  17. CRESTOR [Concomitant]
     Dosage: 10 MG, DAILY (1/D)
  18. OMEGA 3-6-9 [Concomitant]
     Dosage: 2000 MG, DAILY (1/D)
  19. OMEGA 3-6-9 [Concomitant]
     Dosage: 2000 MG, EACH EVENING
  20. ASPIRIN [Concomitant]
     Dosage: 180 MG, DAILY (1/D)
  21. LABETALOL [Concomitant]
  22. BENICAR HCT [Concomitant]
     Dosage: 40 MG, DAILY (1/D)
  23. LOTREL [Concomitant]
     Dosage: UNK, DAILY (1/D)
  24. CLONIDINE HCL [Concomitant]
     Dosage: 0.3 MG, UNK
  25. CALCIUM CITRATE [Concomitant]
     Dosage: UNK, DAILY (1/D)

REACTIONS (18)
  - ABDOMINAL DISCOMFORT [None]
  - BLOOD GLUCOSE DECREASED [None]
  - BLOOD GLUCOSE INCREASED [None]
  - BLOOD PRESSURE INCREASED [None]
  - CATARACT [None]
  - DRUG DISPENSING ERROR [None]
  - FOOT FRACTURE [None]
  - GLYCOSYLATED HAEMOGLOBIN INCREASED [None]
  - HEART RATE INCREASED [None]
  - HYPERHIDROSIS [None]
  - HYPOTENSION [None]
  - JOINT SPRAIN [None]
  - LOCAL SWELLING [None]
  - MALAISE [None]
  - MYOPIA [None]
  - RETINOPATHY [None]
  - STRESS [None]
  - VISUAL IMPAIRMENT [None]
